FAERS Safety Report 6813973-4 (Version None)
Quarter: 2010Q3

REPORT INFORMATION
  Report Type: 
  Country: None (occurrence: None)
  Receive Date: 20100702
  Receipt Date: 20100623
  Transmission Date: 20110219
  Serious: Yes (Hospitalization, Other)
  Sender: FDA-Public Use
  Company Number: JP-JNJFOC-20091006305

PATIENT
  Sex: Female
  Weight: 53 kg

DRUGS (17)
  1. REMICADE [Suspect]
     Indication: RHEUMATOID ARTHRITIS
     Route: 042
     Dates: start: 20080929
  2. REMICADE [Suspect]
     Route: 042
     Dates: start: 20080929
  3. REMICADE [Suspect]
     Route: 042
     Dates: start: 20080929
  4. REMICADE [Suspect]
     Route: 042
     Dates: start: 20080929
  5. REMICADE [Suspect]
     Route: 042
     Dates: start: 20080929
  6. REMICADE [Suspect]
     Route: 042
     Dates: start: 20080929
  7. REMICADE [Suspect]
     Route: 042
     Dates: start: 20080929
  8. EVISTA [Concomitant]
     Route: 048
  9. RHEUMATREX [Concomitant]
     Indication: RHEUMATOID ARTHRITIS
     Route: 048
  10. OLMETEC [Concomitant]
     Route: 048
  11. FLUTIDE DISKUS [Concomitant]
     Route: 055
  12. IDOMETHINE [Concomitant]
  13. OMEPRAZOLE [Concomitant]
     Route: 048
  14. AZULFIDINE [Concomitant]
     Route: 048
  15. KIPRES [Concomitant]
     Route: 048
  16. GLYSENNID [Concomitant]
     Route: 048
  17. PREDNISOLONE [Concomitant]
     Route: 048

REACTIONS (2)
  - DEMYELINATION [None]
  - DYSHIDROSIS [None]
